FAERS Safety Report 24014667 (Version 3)
Quarter: 2024Q3

REPORT INFORMATION
  Report Type: Spontaneous
  Country: GB (occurrence: GB)
  Receive Date: 20240626
  Receipt Date: 20240711
  Transmission Date: 20241017
  Serious: Yes (Other)
  Sender: BAYER
  Company Number: GB-BAYER-2024A088203

PATIENT
  Age: 51 Year
  Sex: Female

DRUGS (1)
  1. MIRENA [Suspect]
     Active Substance: LEVONORGESTREL
     Dosage: 20?G/DAY
     Route: 015
     Dates: start: 2023, end: 2024

REACTIONS (2)
  - Device breakage [None]
  - Abdominal pain lower [None]

NARRATIVE: CASE EVENT DATE: 20240617
